FAERS Safety Report 7397658-4 (Version None)
Quarter: 2011Q2

REPORT INFORMATION
  Report Type: 
  Country: None (occurrence: None)
  Receive Date: 20110406
  Receipt Date: 20110325
  Transmission Date: 20111010
  Serious: Yes (Other)
  Sender: FDA-Public Use
  Company Number: PHHY2011GB24625

PATIENT

DRUGS (3)
  1. VENLAFAXINE [Concomitant]
     Route: 064
  2. CANNABIS [Concomitant]
  3. CITALOPRAM [Suspect]
     Indication: DEPRESSION
     Route: 064

REACTIONS (3)
  - MATERNAL DRUGS AFFECTING FOETUS [None]
  - DRUG EXPOSURE DURING PREGNANCY [None]
  - VENTRICULAR SEPTAL DEFECT [None]
